FAERS Safety Report 12849143 (Version 1)
Quarter: 2016Q4

REPORT INFORMATION
  Report Type: Spontaneous
  Country: US (occurrence: US)
  Receive Date: 20161014
  Receipt Date: 20161014
  Transmission Date: 20170207
  Serious: Yes (Hospitalization, Other)
  Sender: FDA-Public Use
  Company Number: US-PFIZER INC-2016465692

PATIENT
  Age: 46 Year
  Sex: Female

DRUGS (1)
  1. GEMCITABINE HYDROCHLORIDE. [Suspect]
     Active Substance: GEMCITABINE HYDROCHLORIDE
     Indication: PANCREATIC CARCINOMA STAGE IV
     Dosage: (21 G TOTAL DOSE), CYCLIC (SIX CYCLES)
     Dates: start: 200904

REACTIONS (3)
  - Hypertensive emergency [Recovered/Resolved]
  - Livedo reticularis [Recovered/Resolved]
  - Haemolytic uraemic syndrome [Recovered/Resolved]
